FAERS Safety Report 8416453-8 (Version None)
Quarter: 2012Q2

REPORT INFORMATION
  Report Type: 
  Country: None (occurrence: None)
  Receive Date: 20120606
  Receipt Date: 20120524
  Transmission Date: 20120825
  Serious: Yes (Death)
  Sender: FDA-Public Use
  Company Number: HU-ROCHE-1072410

PATIENT
  Age: 29 Year
  Sex: Female

DRUGS (4)
  1. IFOSFAMIDE [Suspect]
     Indication: HODGKIN'S DISEASE
  2. GEMCITABINE [Suspect]
     Indication: HODGKIN'S DISEASE
  3. VINORELBINE [Suspect]
     Indication: HODGKIN'S DISEASE
  4. RITUXIMAB [Suspect]
     Indication: HODGKIN'S DISEASE

REACTIONS (4)
  - PNEUMONIA VIRAL [None]
  - PANCYTOPENIA [None]
  - HISTIOCYTOSIS HAEMATOPHAGIC [None]
  - CYTOMEGALOVIRUS INFECTION [None]
